FAERS Safety Report 4734893-5 (Version None)
Quarter: 2005Q3

REPORT INFORMATION
  Report Type: 
  Country: None (occurrence: None)
  Receive Date: 20050729
  Receipt Date: 20050720
  Transmission Date: 20060218
  Serious: Yes (Life-Threatening, Hospitalization, Other)
  Sender: FDA-Public Use
  Company Number: 2005-07-0164

PATIENT
  Age: 56 Year
  Sex: Male

DRUGS (2)
  1. INTRON A [Suspect]
     Indication: MALIGNANT MELANOMA
     Dosage: SEE IMAGE
     Dates: start: 19970801, end: 19970101
  2. INTRON A [Suspect]
     Indication: MALIGNANT MELANOMA
     Dosage: SEE IMAGE
     Dates: start: 19970101, end: 19980606

REACTIONS (7)
  - CARDIAC FAILURE CONGESTIVE [None]
  - CARDIOGENIC SHOCK [None]
  - CARDIOMYOPATHY [None]
  - HYPOTHYROIDISM [None]
  - MYOCARDITIS [None]
  - RESPIRATORY FAILURE [None]
  - VENTRICULAR DYSFUNCTION [None]
